FAERS Safety Report 8467445-4 (Version None)
Quarter: 2012Q2

REPORT INFORMATION
  Report Type: 
  Country: None (occurrence: None)
  Receive Date: 20120626
  Receipt Date: 20120403
  Transmission Date: 20120825
  Serious: Yes (Other)
  Sender: FDA-Public Use
  Company Number: US-ASTRAZENECA-2012SE16767

PATIENT
  Age: 59 Year
  Sex: Female
  Weight: 62.1 kg

DRUGS (5)
  1. CAPRELSA [Suspect]
     Indication: THYROID CANCER
     Route: 048
     Dates: start: 20120112, end: 20120308
  2. PROTONIX [Concomitant]
     Route: 048
  3. SYNTHROID [Concomitant]
     Route: 048
  4. VITAMIN B-12 [Concomitant]
     Route: 048
  5. LOMOTIL [Concomitant]
     Dosage: 2.5-0.025 MG AS REQUIRED
     Route: 048

REACTIONS (2)
  - BLOOD PRESSURE INCREASED [None]
  - ELECTROCARDIOGRAM QT PROLONGED [None]
